FAERS Safety Report 13383829 (Version 1)
Quarter: 2017Q1

REPORT INFORMATION
  Report Type: Spontaneous
  Country: US (occurrence: US)
  Receive Date: 20170329
  Receipt Date: 20170329
  Transmission Date: 20170429
  Serious: Yes (Other)
  Sender: FDA-Public Use
  Company Number: US-UNICHEM LABORATORIES LIMITED-UCM201703-000068

PATIENT
  Age: 67 Year
  Sex: Male

DRUGS (8)
  1. DIVALPROEX SODIUM. [Suspect]
     Active Substance: DIVALPROEX SODIUM
  2. GLUCOSAMINE [Concomitant]
     Active Substance: GLUCOSAMINE
  3. OMEPRAZOLE. [Concomitant]
     Active Substance: OMEPRAZOLE
  4. LEVOTHYROXINE. [Concomitant]
     Active Substance: LEVOTHYROXINE
  5. ASPIRIN. [Concomitant]
     Active Substance: ASPIRIN
  6. FLUVOXAMINE [Concomitant]
     Active Substance: FLUVOXAMINE
  7. LAMOTRIGINE. [Concomitant]
     Active Substance: LAMOTRIGINE
  8. CHONDROITIN [Concomitant]
     Active Substance: CHONDROITIN

REACTIONS (3)
  - Gaze palsy [Recovered/Resolved]
  - Neurotoxicity [Recovered/Resolved]
  - Diplopia [Recovered/Resolved]
